FAERS Safety Report 8599744-X (Version None)
Quarter: 2012Q3

REPORT INFORMATION
  Report Type: 
  Country: None (occurrence: None)
  Receive Date: 20120816
  Receipt Date: 20120806
  Transmission Date: 20120928
  Serious: Yes (Hospitalization, Other)
  Sender: FDA-Public Use
  Company Number: US-BAYER-2012-017754

PATIENT
  Age: 75 Year
  Sex: Female

DRUGS (2)
  1. INSULIN [Concomitant]
  2. ASPIRIN [Suspect]

REACTIONS (5)
  - FACIAL BONES FRACTURE [None]
  - CARDIAC PACEMAKER INSERTION [None]
  - DEVICE BREAKAGE [None]
  - FALL [None]
  - LOSS OF CONSCIOUSNESS [None]
